FAERS Safety Report 18570374 (Version 1)
Quarter: 2020Q4

REPORT INFORMATION
  Report Type: Report from Study
  Country: US (occurrence: US)
  Receive Date: 20201202
  Receipt Date: 20201202
  Transmission Date: 20210114
  Serious: Yes (Hospitalization)
  Sender: FDA-Public Use
  Company Number: US-GW PHARMA-201605USGW0267

PATIENT

DRUGS (15)
  1. EPIDIOLEX [Suspect]
     Active Substance: CANNABIDIOL
     Indication: SEVERE MYOCLONIC EPILEPSY OF INFANCY
     Dosage: 30 MG/KG, 693 MILLIGRAM, QD
     Route: 048
     Dates: start: 20150826, end: 20160420
  2. EPIDIOLEX [Suspect]
     Active Substance: CANNABIDIOL
     Dosage: 28 MG/KG, 647 MILLIGRAM, QD
     Route: 048
     Dates: start: 20160505, end: 20160517
  3. EPIDIOLEX [Suspect]
     Active Substance: CANNABIDIOL
     Dosage: 30 MG/KG, 693 MILLIGRAM, QD
     Route: 048
     Dates: start: 20160518
  4. ONFI [Concomitant]
     Active Substance: CLOBAZAM
     Indication: SEVERE MYOCLONIC EPILEPSY OF INFANCY
     Dosage: 5 MILLIGRAM, TID
     Route: 048
     Dates: start: 201206
  5. MIRALAX [Concomitant]
     Active Substance: POLYETHYLENE GLYCOL 3350
     Indication: CONSTIPATION
     Dosage: 0.5 DOSAGE FORMS, QD DOSAGE FORMS
     Route: 048
     Dates: start: 2006
  6. ALBUTEROL. [Concomitant]
     Active Substance: ALBUTEROL
     Indication: PNEUMONIA
     Dosage: 2.5 MILLIGRAM, Q4H AS REQUIRED
     Dates: start: 2006
  7. MVI [Concomitant]
     Active Substance: VITAMINS
     Indication: NUTRITIONAL SUPPLEMENTATION
     Dosage: QD UNKNOWN
     Route: 048
     Dates: start: 2006
  8. EPIDIOLEX [Suspect]
     Active Substance: CANNABIDIOL
     Dosage: 25 MG/KG, 578 MILLIGRAM, QD
     Route: 048
     Dates: start: 20160421, end: 20160504
  9. TYLENOL [Concomitant]
     Active Substance: ACETAMINOPHEN
     Indication: PYREXIA
     Dosage: 240 MILLIGRAM, PRN
     Route: 048
     Dates: start: 2006
  10. ZONEGRAN [Concomitant]
     Active Substance: ZONISAMIDE
     Indication: SEVERE MYOCLONIC EPILEPSY OF INFANCY
     Dosage: 75 MILLIGRAM, BID
     Route: 048
     Dates: start: 201412, end: 20160415
  11. DIASTAT [Concomitant]
     Active Substance: DIAZEPAM
     Indication: SEVERE MYOCLONIC EPILEPSY OF INFANCY
     Dosage: 7.5 MILLIGRAM, PRN UNKNOWN
     Route: 054
     Dates: start: 20150805
  12. ZONEGRAN [Concomitant]
     Active Substance: ZONISAMIDE
     Dosage: 100 MILLIGRAM, BID
     Route: 048
     Dates: start: 20160415
  13. TRIAMCINOLONE 0.1% CREAM [Concomitant]
     Active Substance: TRIAMCINOLONE ACETONIDE
     Indication: PROPHYLAXIS
     Dosage: 0.1 PERCENT, QD
     Route: 061
     Dates: start: 2007
  14. SUDAFED [Concomitant]
     Active Substance: PSEUDOEPHEDRINE HYDROCHLORIDE
     Indication: NASAL CONGESTION
     Dosage: 10 ML, PRN
     Route: 048
     Dates: start: 20151206
  15. CUVPOSA [Concomitant]
     Active Substance: GLYCOPYRROLATE
     Indication: INCREASED BRONCHIAL SECRETION
     Dosage: 0.5 MILLIGRAM, BID
     Route: 048
     Dates: start: 20160328

REACTIONS (1)
  - Status epilepticus [Recovered/Resolved]

NARRATIVE: CASE EVENT DATE: 20160512
